FAERS Safety Report 6530580-1 (Version None)
Quarter: 2010Q1

REPORT INFORMATION
  Report Type: 
  Country: None (occurrence: None)
  Receive Date: 20100106
  Receipt Date: 20100106
  Transmission Date: 20100710
  Serious: Yes (Other)
  Sender: FDA-Public Use
  Company Number: None

PATIENT
  Sex: Female
  Weight: 72.5755 kg

DRUGS (1)
  1. ADVAIR DISKUS 100/50 [Suspect]
     Indication: INCREASED UPPER AIRWAY SECRETION
     Dosage: ONCE DAILY (BREATH IN)
     Route: 055

REACTIONS (4)
  - INFECTION [None]
  - JOINT SWELLING [None]
  - LIGAMENT DISORDER [None]
  - MUSCLE DISORDER [None]
